FAERS Safety Report 8847441 (Version 5)
Quarter: 2013Q1

REPORT INFORMATION
  Report Type: Report from Study
  Country: FR (occurrence: FR)
  Receive Date: 20121018
  Receipt Date: 20130122
  Transmission Date: 20140127
  Serious: Yes (Other)
  Sender: FDA-Public Use
  Company Number: FR-CELGENEUS-056-C5013-12101545

PATIENT
  Age: 75 Year
  Sex: Male
  Weight: 89 kg

DRUGS (9)
  1. CC-5013 [Suspect]
     Indication: PLASMA CELL MYELOMA
     Dosage: 25 MILLIGRAM
     Route: 048
     Dates: start: 20090812
  2. CC-5013 [Suspect]
     Route: 048
     Dates: end: 20110106
  3. DEXAMETHASONE [Suspect]
     Indication: PLASMA CELL MYELOMA
     Route: 065
     Dates: start: 20090812
  4. DEXAMETHASONE [Suspect]
     Route: 065
     Dates: end: 20110128
  5. MICARDIS PLUS [Concomitant]
     Indication: HYPERTENSION
     Route: 048
  6. ALLOPURINOL [Concomitant]
     Indication: HYPERURICAEMIA
     Route: 048
  7. SERTRALINE [Concomitant]
     Indication: DEPRESSION
     Route: 048
  8. AMLODIPINE [Concomitant]
     Indication: CARDIAC DISORDER
     Route: 048
  9. SPIRIVA [Concomitant]
     Indication: CHRONIC OBSTRUCTIVE PULMONARY DISEASE
     Route: 048

REACTIONS (1)
  - Adenocarcinoma gastric [Not Recovered/Not Resolved]
